FAERS Safety Report 5070762-1 (Version None)
Quarter: 2006Q3

REPORT INFORMATION
  Report Type: 
  Country: None (occurrence: None)
  Receive Date: 20060804
  Receipt Date: 20060412
  Transmission Date: 20061208
  Serious: Yes (Hospitalization, Congenital Anomaly, Other)
  Sender: FDA-Public Use
  Company Number: GB-BRISTOL-MYERS SQUIBB COMPANY-13343967

PATIENT
  Age: 5 Day
  Sex: Male
  Weight: 1 kg

DRUGS (8)
  1. QUESTRAN [Suspect]
     Route: 064
     Dates: end: 20060407
  2. VITAMIN K [Concomitant]
     Route: 064
  3. PROPRANOLOL [Concomitant]
     Route: 064
  4. RIFAMPICIN [Concomitant]
     Route: 064
  5. LABETALOL HCL [Concomitant]
     Route: 064
  6. URSODEOXYCHOLIC ACID [Concomitant]
     Route: 064
  7. MULTIVITAMIN [Concomitant]
     Route: 064
  8. PIRITON [Concomitant]
     Route: 064

REACTIONS (6)
  - ACIDOSIS HYPERCHLORAEMIC [None]
  - DRUG EXPOSURE DURING PREGNANCY [None]
  - HYPERCHLORAEMIA [None]
  - METABOLIC ACIDOSIS [None]
  - PREGNANCY [None]
  - PREMATURE BABY [None]
